FAERS Safety Report 4690148-9 (Version None)
Quarter: 2005Q2

REPORT INFORMATION
  Report Type: 
  Country: None (occurrence: None)
  Receive Date: 20050613
  Receipt Date: 20050603
  Transmission Date: 20051028
  Serious: Yes (Other)
  Sender: FDA-Public Use
  Company Number: 2005-06-0107

PATIENT
  Age: 78 Year
  Sex: Female

DRUGS (5)
  1. CELESTONE TAB [Suspect]
     Indication: DYSPNOEA
     Dosage: 1 MG QD ORAL
     Route: 048
     Dates: start: 20050531, end: 20050602
  2. AMOXICILLIN [Concomitant]
  3. CARBOCISTEINE [Concomitant]
  4. BAMBUTEROL [Concomitant]
  5. CEFIXIME [Concomitant]

REACTIONS (3)
  - DYSPNOEA [None]
  - ERYTHEMA [None]
  - PRURITUS [None]
